FAERS Safety Report 8591024-1 (Version None)
Quarter: 2012Q3

REPORT INFORMATION
  Report Type: 
  Country: None (occurrence: None)
  Receive Date: 20120813
  Receipt Date: 20120810
  Transmission Date: 20120928
  Serious: Yes (Other)
  Sender: FDA-Public Use
  Company Number: DE-TEVA-337848GER

PATIENT
  Sex: Female
  Weight: 117 kg

DRUGS (3)
  1. TIZANIDINE HYDROCHLORIDE [Concomitant]
     Dosage: 12 MILLIGRAM DAILY;
  2. SERTRALINE HYDROCHLORIDE [Concomitant]
     Dosage: 50 UNKNOWN DAILY;
  3. COPAXONE [Suspect]
     Indication: MULTIPLE SCLEROSIS
     Dosage: 20 MILLIGRAM DAILY;
     Route: 058
     Dates: start: 20110608

REACTIONS (1)
  - TYPE 2 DIABETES MELLITUS [None]
